FAERS Safety Report 8483375-6 (Version None)
Quarter: 2012Q3

REPORT INFORMATION
  Report Type: 
  Country: None (occurrence: None)
  Receive Date: 20120702
  Receipt Date: 20120626
  Transmission Date: 20120928
  Serious: Yes (Hospitalization)
  Sender: FDA-Public Use
  Company Number: FR-PFIZER INC-2012152882

PATIENT
  Age: 21 Year
  Sex: Female

DRUGS (2)
  1. LEVONORGESTREL AND ETHINYL ESTRADIOL [Suspect]
     Indication: OFF LABEL USE
     Dosage: UNK
     Route: 048
     Dates: start: 20120207, end: 20120504
  2. LEVONORGESTREL AND ETHINYL ESTRADIOL [Suspect]
     Indication: POLYCYSTIC OVARIES

REACTIONS (2)
  - LOSS OF CONSCIOUSNESS [None]
  - VASCULITIS CEREBRAL [None]
